FAERS Safety Report 9808878 (Version 4)
Quarter: 2014Q4

REPORT INFORMATION
  Report Type: Report from Study
  Country: US (occurrence: US)
  Receive Date: 20140110
  Receipt Date: 20141017
  Transmission Date: 20150529
  Serious: Yes (Other)
  Sender: FDA-Public Use
  Company Number: US-ALEXION-A201304540

PATIENT

DRUGS (4)
  1. FOLIC ACID. [Concomitant]
     Active Substance: FOLIC ACID
     Indication: FOLATE DEFICIENCY
     Dosage: UNK, QD
     Route: 065
     Dates: start: 20121221
  2. SOLIRIS [Suspect]
     Active Substance: ECULIZUMAB
     Indication: PAROXYSMAL NOCTURNAL HAEMOGLOBINURIA
     Dosage: UNK
     Route: 042
  3. SOLIRIS [Suspect]
     Active Substance: ECULIZUMAB
     Dosage: 900 MG, Q2W
     Route: 042
     Dates: start: 20121204
  4. IRON [Concomitant]
     Active Substance: IRON
     Indication: MINERAL SUPPLEMENTATION
     Dosage: UNK
     Route: 065
     Dates: start: 20121221

REACTIONS (7)
  - Aplastic anaemia [Unknown]
  - Blood lactate dehydrogenase abnormal [Unknown]
  - Dyspnoea [Unknown]
  - Somnolence [Unknown]
  - Platelet count abnormal [Unknown]
  - Insomnia [Recovering/Resolving]
  - Fatigue [Not Recovered/Not Resolved]
